FAERS Safety Report 4399811-0 (Version None)
Quarter: 2004Q3

REPORT INFORMATION
  Report Type: 
  Country: None (occurrence: None)
  Receive Date: 20040714
  Receipt Date: 20040702
  Transmission Date: 20050211
  Serious: Yes (Life-Threatening, Hospitalization)
  Sender: FDA-Public Use
  Company Number: 04P-087-0264921-00

PATIENT
  Age: 75 Year
  Sex: Female
  Weight: 43 kg

DRUGS (17)
  1. BIAXIN [Suspect]
     Indication: RESPIRATORY DISORDER
     Dosage: 200 MG, 2 IN 1 D, PER ORAL
     Route: 048
     Dates: start: 20031218, end: 20031223
  2. DISOPYRAMIDE [Suspect]
     Indication: ATRIAL FIBRILLATION
     Dosage: 100 MG, 2 IN 1 D, PER ORAL
     Route: 048
     Dates: start: 20000101, end: 20031223
  3. DIGITOXIN TAB [Concomitant]
  4. AMLODIPINE [Concomitant]
  5. AMEZINIUM METILSULFATE [Concomitant]
  6. FUROSEMIDE [Concomitant]
  7. ALFACALCIDOL [Concomitant]
  8. PRECIPITATED CALCIUM CARBONATE [Concomitant]
  9. TIMEPIDIUM BROMIDE [Concomitant]
  10. TERPRENONE [Concomitant]
  11. CETIRIZINE HCL [Concomitant]
  12. TRIAZOLAM [Concomitant]
  13. SENNOSIDE [Concomitant]
  14. SENNA LEAF/SENNA POD [Concomitant]
  15. EPOETIN BETA [Concomitant]
  16. STRONG NEO-MINOPHAGEN C [Concomitant]
  17. EXTRACT OF INFLAMMATORY RABBIT SKIN INOCULATED BY VACCINIA VIRUS [Concomitant]

REACTIONS (7)
  - DRUG INTERACTION [None]
  - ELECTROCARDIOGRAM QT PROLONGED [None]
  - HAEMODIALYSIS [None]
  - HYPOGLYCAEMIA [None]
  - LOSS OF CONSCIOUSNESS [None]
  - TORSADE DE POINTES [None]
  - VENTRICULAR TACHYCARDIA [None]
